FAERS Safety Report 10245989 (Version 2)
Quarter: 2014Q2

REPORT INFORMATION
  Report Type: Spontaneous
  Country: JP (occurrence: JP)
  Receive Date: 20140619
  Receipt Date: 20140619
  Transmission Date: 20141212
  Serious: Yes (Death, Other)
  Sender: FDA-Public Use
  Company Number: PHHY2014JP074097

PATIENT
  Age: 79 Year
  Sex: Male

DRUGS (2)
  1. CICLOSPORIN [Suspect]
     Indication: PSORIASIS
     Route: 048
  2. ETRETINATE [Concomitant]
     Route: 048

REACTIONS (3)
  - Pneumonia [Fatal]
  - Condition aggravated [Fatal]
  - Renal impairment [Unknown]
